FAERS Safety Report 14141001 (Version 2)
Quarter: 2017Q4

REPORT INFORMATION
  Report Type: Spontaneous
  Country: US (occurrence: US)
  Receive Date: 20171030
  Receipt Date: 20171212
  Transmission Date: 20180321
  Serious: Yes (Hospitalization, Other)
  Sender: FDA-Public Use
  Company Number: PHEH2017US034757

PATIENT
  Age: 60 Year
  Sex: Male
  Weight: 177 kg

DRUGS (1)
  1. ENTRESTO [Suspect]
     Active Substance: SACUBITRIL\VALSARTAN
     Indication: CARDIAC FAILURE CONGESTIVE
     Dosage: 50 MG, QD
     Route: 048
     Dates: start: 20170629

REACTIONS (6)
  - Angina pectoris [Unknown]
  - Myocardial infarction [Unknown]
  - Dyspnoea [Unknown]
  - Body mass index increased [Unknown]
  - Underdose [Unknown]
  - Acute myocardial infarction [Recovered/Resolved]

NARRATIVE: CASE EVENT DATE: 20170814
